FAERS Safety Report 17303572 (Version 2)
Quarter: 2020Q1

REPORT INFORMATION
  Report Type: Report from Study
  Country: US (occurrence: US)
  Receive Date: 20200122
  Receipt Date: 20200129
  Transmission Date: 20200409
  Serious: No
  Sender: FDA-Public Use
  Company Number: NVSC2020US014557

PATIENT
  Sex: Female

DRUGS (1)
  1. ILARIS [Suspect]
     Active Substance: CANAKINUMAB
     Indication: ARTHROPATHY
     Dosage: 150 MG, Q4W
     Route: 065

REACTIONS (2)
  - Injection site swelling [Unknown]
  - Injection site pain [Unknown]
